FAERS Safety Report 5487167-1 (Version None)
Quarter: 2007Q4

REPORT INFORMATION
  Report Type: 
  Country: None (occurrence: None)
  Receive Date: 20071016
  Receipt Date: 20071010
  Transmission Date: 20080405
  Serious: Yes (Other)
  Sender: FDA-Public Use
  Company Number: US-ASTRAZENECA-2007UW22146

PATIENT
  Age: 54 Year
  Sex: Female
  Weight: 77.3 kg

DRUGS (6)
  1. SYMBICORT [Suspect]
     Dosage: 80/4.5 UG/TWO INHALATIONS TWICE DAILY
     Route: 055
     Dates: start: 20070916
  2. SYMBICORT [Suspect]
     Dosage: 80/4.5 UG/ONE INHALATIONS TWICE DAILY
     Route: 055
     Dates: end: 20070918
  3. THEOPHYLLINE [Concomitant]
     Indication: ASTHMA
     Route: 048
  4. DYAZIDE [Concomitant]
     Indication: HYPERTENSION
     Route: 048
  5. VENTOLIN [Concomitant]
     Indication: ASTHMA
     Route: 055
  6. ADVAIR DISKUS 100/50 [Concomitant]
     Dosage: 250/50, 1 PUFF BID

REACTIONS (4)
  - BLINDNESS TRANSIENT [None]
  - EYE PAIN [None]
  - PHOTOPSIA [None]
  - PHOTOSENSITIVITY REACTION [None]
